FAERS Safety Report 16388973 (Version 1)
Quarter: 2019Q2

REPORT INFORMATION
  Report Type: Spontaneous
  Country: FR (occurrence: FR)
  Receive Date: 20190604
  Receipt Date: 20190604
  Transmission Date: 20190711
  Serious: Yes (Hospitalization)
  Sender: FDA-Public Use
  Company Number: FR-ROCHE-2328711

PATIENT
  Age: 57 Year
  Sex: Male
  Weight: 86.3 kg

DRUGS (1)
  1. ACTILYSE [Suspect]
     Active Substance: ALTEPLASE
     Indication: ISCHAEMIC STROKE
     Route: 042
     Dates: start: 20190502, end: 20190502

REACTIONS (2)
  - Haemorrhagic transformation stroke [Recovering/Resolving]
  - Intracranial mass [Recovering/Resolving]

NARRATIVE: CASE EVENT DATE: 20190502
